FAERS Safety Report 5798875-7 (Version None)
Quarter: 2008Q3

REPORT INFORMATION
  Report Type: 
  Country: None (occurrence: None)
  Receive Date: 20080702
  Receipt Date: 20080626
  Transmission Date: 20090109
  Serious: Yes (Hospitalization, Other)
  Sender: FDA-Public Use
  Company Number: US-MERCK-0703USA01960

PATIENT
  Age: 67 Year
  Sex: Female
  Weight: 42 kg

DRUGS (15)
  1. FOSAMAX [Suspect]
     Indication: OSTEOPOROSIS
     Route: 048
     Dates: start: 19990701
  2. FOSAMAX [Suspect]
     Route: 048
     Dates: start: 20010105, end: 20060607
  3. FOSAMAX [Suspect]
     Route: 048
     Dates: end: 20010105
  4. PREDNISONE [Concomitant]
     Route: 065
     Dates: start: 19871201
  5. REMICADE [Concomitant]
     Route: 065
     Dates: start: 20010815, end: 20060223
  6. LISINOPRIL [Concomitant]
     Route: 065
  7. DIPYRONE [Concomitant]
     Route: 065
  8. EVISTA [Concomitant]
     Route: 065
  9. NORVASC [Concomitant]
     Route: 065
  10. LEFLUNOMIDE [Concomitant]
     Route: 065
  11. PANCREASE (PANCREATIN) [Concomitant]
     Route: 065
  12. [THERAPY UNSPECIFIED] [Concomitant]
     Route: 065
  13. LUMIGAN [Concomitant]
     Route: 047
  14. BRIMONIDINE TARTRATE [Concomitant]
     Route: 065
  15. VOLTAREN [Concomitant]
     Route: 047

REACTIONS (11)
  - ARTHROPATHY [None]
  - BONE DENSITY DECREASED [None]
  - DRUG ADMINISTRATION ERROR [None]
  - FISTULA DISCHARGE [None]
  - INFLUENZA [None]
  - OSTEOMYELITIS [None]
  - OSTEONECROSIS [None]
  - SYNOVIAL CYST [None]
  - SYNOVITIS [None]
  - TENOSYNOVITIS [None]
  - WRIST FRACTURE [None]
